FAERS Safety Report 7152056-3 (Version None)
Quarter: 2010Q4

REPORT INFORMATION
  Report Type: 
  Country: None (occurrence: None)
  Receive Date: 20101212
  Receipt Date: 20101129
  Transmission Date: 20110411
  Serious: Yes (Hospitalization)
  Sender: FDA-Public Use
  Company Number: DE-MYLANLABS-2010S1019572

PATIENT
  Age: 68 Year
  Sex: Female
  Weight: 110 kg

DRUGS (2)
  1. DICLOFENAC [Suspect]
     Indication: PAIN
     Route: 048
     Dates: end: 20101003
  2. ASPIRIN [Suspect]
     Indication: PRODUCT USED FOR UNKNOWN INDICATION
     Route: 048

REACTIONS (5)
  - ASTHENIA [None]
  - BLOOD PRESSURE DECREASED [None]
  - COLITIS [None]
  - FATIGUE [None]
  - GASTRITIS EROSIVE [None]
